FAERS Safety Report 6662350-8 (Version None)
Quarter: 2010Q1

REPORT INFORMATION
  Report Type: 
  Country: None (occurrence: None)
  Receive Date: 20100331
  Receipt Date: 20090713
  Transmission Date: 20100710
  Serious: No
  Sender: FDA-Public Use
  Company Number: US-ABBOTT-09P-163-0580559-00

PATIENT
  Sex: Female

DRUGS (4)
  1. LUPRON DEPOT [Suspect]
     Indication: ENDOMETRIOSIS
     Route: 030
     Dates: start: 20090610
  2. LUPRON DEPOT [Suspect]
     Indication: MYOMECTOMY
  3. LUPRON DEPOT [Suspect]
     Indication: UTERINE LEIOMYOMA
  4. PROVERA [Suspect]
     Indication: DRUG USE FOR UNKNOWN INDICATION

REACTIONS (5)
  - AMENORRHOEA [None]
  - FEELING HOT [None]
  - MENSTRUAL DISORDER [None]
  - MUSCLE SPASMS [None]
  - VAGINAL HAEMORRHAGE [None]
